FAERS Safety Report 14846032 (Version 1)
Quarter: 2018Q2

REPORT INFORMATION
  Report Type: Spontaneous
  Country: FR (occurrence: FR)
  Receive Date: 20180504
  Receipt Date: 20180504
  Transmission Date: 20180711
  Serious: Yes (Other)
  Sender: FDA-Public Use
  Company Number: FR-MERCK KGAA-2047184

PATIENT
  Age: 17 Year
  Sex: Female

DRUGS (6)
  1. NOVOTHYROX [Suspect]
     Active Substance: LEVOTHYROXINE SODIUM
     Dates: start: 20170117
  2. NOVOTHYROX [Suspect]
     Active Substance: LEVOTHYROXINE SODIUM
     Dates: start: 20170710
  3. NOVOTHYROX [Suspect]
     Active Substance: LEVOTHYROXINE SODIUM
  4. NOVOTHYROX [Suspect]
     Active Substance: LEVOTHYROXINE SODIUM
     Dates: start: 20171228
  5. NOVOTHYROX [Suspect]
     Active Substance: LEVOTHYROXINE SODIUM
     Indication: PRODUCT USED FOR UNKNOWN INDICATION
     Dates: start: 2017
  6. NOVOTHYROX [Suspect]
     Active Substance: LEVOTHYROXINE SODIUM
     Dates: start: 20170914

REACTIONS (43)
  - Arthralgia [None]
  - Back pain [None]
  - Apathy [None]
  - Sluggishness [None]
  - Hypotonia [None]
  - Social avoidant behaviour [None]
  - Illusion [None]
  - Disturbance in attention [None]
  - Intellectual disability [None]
  - Loss of personal independence in daily activities [None]
  - Aspartate aminotransferase increased [None]
  - Tri-iodothyronine free decreased [None]
  - Infectious mononucleosis [None]
  - Pelvic pain [None]
  - Autophobia [None]
  - Initial insomnia [None]
  - Gamma-glutamyltransferase increased [None]
  - Lymphocyte count increased [None]
  - Thyroxine free decreased [None]
  - Hypersensitivity [None]
  - Feeling guilty [None]
  - Depression [None]
  - Blood thyroid stimulating hormone abnormal [None]
  - Neutrophil count decreased [None]
  - Hypersomnia [None]
  - Impaired work ability [None]
  - Angina pectoris [None]
  - Pathogen resistance [None]
  - Toothache [None]
  - Negative thoughts [None]
  - Daydreaming [None]
  - Scarlet fever [None]
  - Vulvovaginal pain [None]
  - Pain [None]
  - Periodontitis [None]
  - Psychiatric symptom [None]
  - Hypotension [Recovering/Resolving]
  - Alanine aminotransferase increased [None]
  - Headache [None]
  - Sense of oppression [None]
  - Decreased activity [None]
  - Loss of libido [None]
  - Asthenia [None]

NARRATIVE: CASE EVENT DATE: 20170116
